FAERS Safety Report 18972369 (Version 1)
Quarter: 2021Q1

REPORT INFORMATION
  Report Type: Spontaneous
  Country: US (occurrence: US)
  Receive Date: 20210304
  Receipt Date: 20210304
  Transmission Date: 20210420
  Serious: Yes (Other)
  Sender: FDA-Public Use
  Company Number: None

PATIENT
  Age: 46 Year
  Sex: Female
  Weight: 70.65 kg

DRUGS (2)
  1. TIZANIDINE. [Suspect]
     Active Substance: TIZANIDINE
     Indication: MUSCLE SPASMS
     Dosage: ?          QUANTITY:21 TABLET(S);OTHER FREQUENCY:ONE TABLET AT BEDT;?
     Route: 048
  2. ALLEVE PRN [Concomitant]

REACTIONS (11)
  - Feeling abnormal [None]
  - Dizziness [None]
  - Fear [None]
  - Somnolence [None]
  - Intercepted product dispensing error [None]
  - Product substitution issue [None]
  - Insomnia [None]
  - Hallucination [None]
  - Impaired driving ability [None]
  - Amenorrhoea [None]
  - Hypersomnia [None]

NARRATIVE: CASE EVENT DATE: 20210124
